FAERS Safety Report 6302898-9 (Version None)
Quarter: 2009Q3

REPORT INFORMATION
  Report Type: 
  Country: None (occurrence: None)
  Receive Date: 20090810
  Receipt Date: 20090729
  Transmission Date: 20100115
  Serious: Yes (Hospitalization)
  Sender: FDA-Public Use
  Company Number: GB-ELI_LILLY_AND_COMPANY-GB200905001271

PATIENT
  Sex: Male
  Weight: 86 kg

DRUGS (4)
  1. BYETTA [Suspect]
     Indication: TYPE 2 DIABETES MELLITUS
     Dosage: 5 UG, UNKNOWN
     Route: 058
     Dates: start: 20090420, end: 20090427
  2. WARFARIN [Concomitant]
     Dosage: 3 MG, UNKNOWN
     Route: 048
     Dates: start: 20090401
  3. GLICLAZIDE [Concomitant]
     Dosage: 120 MG, UNKNOWN
     Route: 048
  4. METFORMIN HCL [Concomitant]
     Dosage: 2 G, UNKNOWN
     Route: 048

REACTIONS (1)
  - PULMONARY EMBOLISM [None]
